FAERS Safety Report 9165977 (Version 1)
Quarter: 2013Q1

REPORT INFORMATION
  Report Type: Spontaneous
  Country: US (occurrence: None)
  Receive Date: 20130301
  Receipt Date: 20130301
  Transmission Date: 20140127
  Serious: Yes (Hospitalization)
  Sender: FDA-Public Use
  Company Number: 20130066

PATIENT
  Age: 68 Year
  Sex: Male

DRUGS (3)
  1. CYCLOSPORINE INJECTION, USP (866-10) 50 MG/ML [Suspect]
     Indication: IMMUNOSUPPRESSANT DRUG THERAPY
  2. CYCLOSPORINE UNK [Suspect]
     Indication: IMMUNOSUPPRESSANT DRUG THERAPY
     Route: 048
  3. TACROLIMUS UNK [Suspect]
     Indication: IMMUNOSUPPRESSANT DRUG THERAPY

REACTIONS (5)
  - Guillain-Barre syndrome [None]
  - Neurotoxicity [None]
  - Toxicity to various agents [None]
  - Rhabdomyolysis [None]
  - Renal failure acute [None]
